FAERS Safety Report 6942079-9 (Version None)
Quarter: 2010Q3

REPORT INFORMATION
  Report Type: 
  Country: None (occurrence: None)
  Receive Date: 20100823
  Receipt Date: 20100811
  Transmission Date: 20110219
  Serious: Yes (Life-Threatening, Other)
  Sender: FDA-Public Use
  Company Number: 2010P1000795

PATIENT
  Age: 54 Year
  Sex: Female

DRUGS (6)
  1. ULTIVA [Suspect]
     Indication: GENERAL ANAESTHESIA
     Dosage: 0.29 MG/KG/HR; ; IV
     Route: 042
  2. PROPOFOL [Suspect]
     Indication: GENERAL ANAESTHESIA
     Dosage: 2.5 MG/KG; X1; IV
     Route: 042
  3. BETA-2 ADRENERGIC [Concomitant]
  4. AGONIST INHALANTS INHALATIVE [Concomitant]
  5. CORTICOSTEROIDS [Concomitant]
  6. CLOMIPRAMINE [Concomitant]

REACTIONS (2)
  - NO THERAPEUTIC RESPONSE [None]
  - TRISMUS [None]
